FAERS Safety Report 9821533 (Version 2)
Quarter: 2014Q1

REPORT INFORMATION
  Report Type: Report from Study
  Country: BE (occurrence: BE)
  Receive Date: 20140116
  Receipt Date: 20140207
  Transmission Date: 20141002
  Serious: Yes (Life-Threatening, Hospitalization)
  Sender: FDA-Public Use
  Company Number: BE-AMGEN-BELCT2014002365

PATIENT
  Age: 52 Year
  Sex: Male
  Weight: 86 kg

DRUGS (9)
  1. DARBEPOETIN ALFA [Suspect]
     Indication: MYELODYSPLASTIC SYNDROME
     Dosage: 500 MUG, UNK
     Route: 065
     Dates: start: 20131120
  2. MAGNETOP                           /00434501/ [Concomitant]
     Dosage: 1 UNK, UNK
     Dates: start: 20131021, end: 20140109
  3. FLU [Concomitant]
     Dosage: 1 UNK, UNK
     Dates: start: 20131107, end: 20131107
  4. TRIBVIT [Concomitant]
     Dosage: 500 MUG, UNK
     Dates: start: 20130828
  5. LOGIMAT [Concomitant]
     Dosage: 1 UNK, UNK
     Dates: start: 201302
  6. IBUPROFEN [Concomitant]
     Dosage: 400-600 MG, UNK
     Dates: start: 20131209
  7. DICLOFENAC [Concomitant]
     Dosage: 75 MG, UNK
     Dates: start: 20131212, end: 20140111
  8. ADVANTAN [Concomitant]
     Dosage: 1 UNK, UNK
     Dates: start: 20140106
  9. DEPOMEDROL [Concomitant]
     Dosage: 1 UNK, UNK
     Dates: start: 20131211, end: 20131227

REACTIONS (1)
  - Pulmonary embolism [Recovered/Resolved]
